FAERS Safety Report 8129838-4 (Version None)
Quarter: 2012Q1

REPORT INFORMATION
  Report Type: 
  Country: None (occurrence: None)
  Receive Date: 20120210
  Receipt Date: 20120203
  Transmission Date: 20120608
  Serious: Yes (Other)
  Sender: FDA-Public Use
  Company Number: US-US-EMD SERONO, INC.-7111553

PATIENT
  Sex: Female

DRUGS (1)
  1. REBIF [Suspect]
     Indication: MULTIPLE SCLEROSIS
     Route: 058
     Dates: start: 20081203

REACTIONS (9)
  - BLOOD GLUCOSE INCREASED [None]
  - BLOOD IMMUNOGLOBULIN A INCREASED [None]
  - ALOPECIA [None]
  - URTICARIA [None]
  - PAIN [None]
  - INJECTION SITE ERYTHEMA [None]
  - PRURITUS [None]
  - INJECTION SITE HAEMATOMA [None]
  - ALLERGY TO CHEMICALS [None]
